FAERS Safety Report 9415515 (Version 3)
Quarter: 2013Q3

REPORT INFORMATION
  Report Type: Spontaneous
  Country: US (occurrence: US)
  Receive Date: 20130723
  Receipt Date: 20130912
  Transmission Date: 20140515
  Serious: Yes (Other)
  Sender: FDA-Public Use
  Company Number: US-SHIRE-ALL1-2013-04817

PATIENT
  Sex: Male
  Weight: 3.25 kg

DRUGS (1)
  1. VYVANSE [Suspect]
     Indication: PRODUCT USED FOR UNKNOWN INDICATION
     Dosage: 70 MG, UNKNOWN
     Route: 064
     Dates: start: 2012, end: 201203

REACTIONS (5)
  - Galactosaemia [Not Recovered/Not Resolved]
  - Jaundice [Recovered/Resolved]
  - Premature baby [Recovered/Resolved]
  - Cyanosis neonatal [Recovered/Resolved]
  - Foetal exposure during pregnancy [Recovered/Resolved]
